FAERS Safety Report 6175697-9 (Version None)
Quarter: 2009Q2

REPORT INFORMATION
  Report Type: 
  Country: None (occurrence: None)
  Receive Date: 20090427
  Receipt Date: 20080408
  Transmission Date: 20091009
  Serious: Yes (Other)
  Sender: FDA-Public Use
  Company Number: TEST00208001520

PATIENT
  Age: 66 Year
  Sex: Male
  Weight: 82.5 kg

DRUGS (7)
  1. ANDROGEL [Suspect]
     Indication: HYPOTONIA
     Dosage: 10 GRAM(S) QD TRANSCUTANEOUS DAILY DOSE: 10 GRAM(S)
     Route: 062
     Dates: start: 20080212, end: 20080403
  2. ANDROGEL [Suspect]
     Indication: MUSCLE HYPERTROPHY
     Dosage: 10 GRAM(S) QD TRANSCUTANEOUS DAILY DOSE: 10 GRAM(S)
     Route: 062
     Dates: start: 20080212, end: 20080403
  3. CARBIDOPA/LEVADOPA (CARBIDOPA/LEVADOPA) [Concomitant]
  4. SIMVASTATIN [Concomitant]
  5. FLUDROCORTISONE ACETATE [Concomitant]
  6. ASPIRIN [Concomitant]
  7. HYOSCYMINE (HYOSCYMINE) [Concomitant]

REACTIONS (1)
  - PROSTATIC SPECIFIC ANTIGEN INCREASED [None]
